FAERS Safety Report 8326033-0 (Version None)
Quarter: 2012Q2

REPORT INFORMATION
  Report Type: 
  Country: None (occurrence: None)
  Receive Date: 20120501
  Receipt Date: 20120423
  Transmission Date: 20120825
  Serious: Yes (Hospitalization, Other)
  Sender: FDA-Public Use
  Company Number: IT-NAPPMUNDI-GBR-2011-0008291

PATIENT
  Sex: Female

DRUGS (2)
  1. MS CONTIN [Suspect]
     Indication: SUICIDE ATTEMPT
     Dosage: 480 MG, SINGLE
     Route: 048
     Dates: start: 20110512, end: 20110512
  2. PRAZEPAM [Suspect]
     Indication: SUICIDE ATTEMPT
     Dosage: 100 MG, SINGLE
     Route: 048
     Dates: start: 20110512, end: 20110512

REACTIONS (4)
  - MULTIPLE DRUG OVERDOSE [None]
  - SUICIDE ATTEMPT [None]
  - SOPOR [None]
  - DRUG ABUSE [None]
